FAERS Safety Report 5820973-X (Version None)
Quarter: 2008Q3

REPORT INFORMATION
  Report Type: 
  Country: None (occurrence: None)
  Receive Date: 20080724
  Receipt Date: 20080709
  Transmission Date: 20090109
  Serious: Yes (Hospitalization)
  Sender: FDA-Public Use
  Company Number: US-AVENTIS-200814384US

PATIENT
  Age: 73 Year
  Sex: Male
  Weight: 68 kg

DRUGS (10)
  1. LASIX [Suspect]
     Dosage: DOSE: UNK
  2. ASCORBIC ACID [Suspect]
  3. CALCIUM CARBONATE [Suspect]
     Dosage: DOSE: UNK
  4. VITAMIN A [Suspect]
     Dosage: DOSE: 10,000
  5. LISINOPRIL [Concomitant]
  6. LEVOTHYROXINE SODIUM [Concomitant]
  7. MGO [Concomitant]
  8. NIACIN [Concomitant]
  9. MULTI-VITAMINS [Concomitant]
  10. VIT D [Concomitant]
     Dosage: DOSE: UNK

REACTIONS (3)
  - HYPEROXALURIA [None]
  - RENAL FAILURE CHRONIC [None]
  - TUBULOINTERSTITIAL NEPHRITIS [None]
